FAERS Safety Report 8787911 (Version 3)
Quarter: 2013Q1

REPORT INFORMATION
  Report Type: Spontaneous
  Country: BR (occurrence: BR)
  Receive Date: 20120914
  Receipt Date: 20130208
  Transmission Date: 20140127
  Serious: Yes (Other)
  Sender: FDA-Public Use
  Company Number: BR-ROCHE-1127255

PATIENT
  Age: 60 Year
  Sex: Male
  Weight: 90 kg

DRUGS (5)
  1. AVASTIN [Suspect]
     Indication: RENAL CANCER METASTATIC
     Route: 042
     Dates: start: 20120321
  2. AVASTIN [Suspect]
     Dosage: RESTARTED
     Route: 042
  3. ROFERON-A [Suspect]
     Indication: RENAL CANCER METASTATIC
     Route: 058
     Dates: start: 20120321
  4. LIPLESS [Concomitant]
     Indication: HYPERTRIGLYCERIDAEMIA
     Route: 048
     Dates: start: 20120710
  5. DIOVAN [Concomitant]
     Indication: HYPERTENSION
     Route: 048
     Dates: start: 20120615

REACTIONS (1)
  - Hypertriglyceridaemia [Recovered/Resolved]
